FAERS Safety Report 4473718-2 (Version None)
Quarter: 2004Q4

REPORT INFORMATION
  Report Type: 
  Country: None (occurrence: None)
  Receive Date: 20040909
  Receipt Date: 20040406
  Transmission Date: 20050328
  Serious: Yes (Hospitalization)
  Sender: FDA-Public Use
  Company Number: APP200400369

PATIENT
  Age: 18 Year
  Sex: Female
  Weight: 91.173 kg

DRUGS (8)
  1. OXYTOCIN [Suspect]
     Indication: POSTPARTUM HAEMORRHAGE
     Dosage: 20 UNITS IN INTRAVENOUS FLUIDS, INTRAVENOUS; 40 UNITS IN INTRAVERNOUS FLUIDS, INTRAVENOUS
     Route: 042
     Dates: start: 20040401, end: 20040401
  2. OXYTOCIN [Suspect]
     Indication: POSTPARTUM HAEMORRHAGE
     Dosage: 20 UNITS IN INTRAVENOUS FLUIDS, INTRAVENOUS; 40 UNITS IN INTRAVERNOUS FLUIDS, INTRAVENOUS
     Route: 042
     Dates: start: 20040402, end: 20040402
  3. TYLENOL W/ CODEINE NO. 3 [Concomitant]
  4. COLACE (DOCUSATE SODIUM) [Concomitant]
  5. SENOKOT [Concomitant]
  6. STADOL [Concomitant]
  7. KONDREMUL (MINERAL OIL EMULSION) [Concomitant]
  8. UNASYN (UNACID) [Concomitant]

REACTIONS (1)
  - DRUG INEFFECTIVE [None]
